FAERS Safety Report 24808991 (Version 1)
Quarter: 2025Q1

REPORT INFORMATION
  Report Type: Spontaneous
  Country: US (occurrence: US)
  Receive Date: 20250106
  Receipt Date: 20250106
  Transmission Date: 20250408
  Serious: No
  Sender: TERSERA THERAPEUTICS
  Company Number: US-TERSERA THERAPEUTICS LLC-2024TRS000988

PATIENT

DRUGS (1)
  1. PRIALT [Suspect]
     Active Substance: ZICONOTIDE ACETATE
     Indication: Spinal pain
     Route: 037

REACTIONS (3)
  - Withdrawal syndrome [Unknown]
  - Illness [Unknown]
  - Device malfunction [Unknown]

NARRATIVE: CASE EVENT DATE: 20240216
